FAERS Safety Report 5093138-X (Version None)
Quarter: 2006Q3

REPORT INFORMATION
  Report Type: 
  Country: None (occurrence: None)
  Receive Date: 20060828
  Receipt Date: 20060818
  Transmission Date: 20061208
  Serious: Yes (Death)
  Sender: FDA-Public Use
  Company Number: TAP2006Q01435

PATIENT
  Age: 81 Year
  Sex: Male

DRUGS (6)
  1. LUPRON DEPOT-4 [Suspect]
     Indication: PROSTATE CANCER
     Dosage: 30 MG, 1 IN 4 M
     Dates: start: 20010426
  2. NITROGLYCERIN PATCH (GLYCERYL TRINITRATE) [Concomitant]
  3. VERAPAMIL [Concomitant]
  4. PROPRANOLOL [Concomitant]
  5. ASPIRIN [Concomitant]
  6. PREDNISONE TAB [Concomitant]

REACTIONS (1)
  - DEATH [None]
